FAERS Safety Report 5080346-7 (Version None)
Quarter: 2006Q3

REPORT INFORMATION
  Report Type: 
  Country: None (occurrence: None)
  Receive Date: 20060809
  Receipt Date: 20060707
  Transmission Date: 20061208
  Serious: Yes (Hospitalization)
  Sender: FDA-Public Use
  Company Number: 006#1#2006-00045

PATIENT
  Age: 76 Year
  Sex: Male

DRUGS (1)
  1. EDEX [Suspect]
     Indication: ERECTILE DYSFUNCTION
     Dosage: INTRACAVERNOUS
     Route: 017
     Dates: start: 20030701, end: 20060612

REACTIONS (3)
  - ACUTE PULMONARY OEDEMA [None]
  - CHEST PAIN [None]
  - TROPONIN INCREASED [None]
